FAERS Safety Report 24179723 (Version 1)
Quarter: 2024Q3

REPORT INFORMATION
  Report Type: Spontaneous
  Country: US (occurrence: None)
  Receive Date: 20240805
  Receipt Date: 20240805
  Transmission Date: 20241017
  Serious: Yes (Death)
  Sender: Public
  Company Number: None

PATIENT
  Age: 61 Year
  Sex: Male
  Weight: 54 kg

DRUGS (1)
  1. TACROLIMUS [Suspect]
     Active Substance: TACROLIMUS
     Indication: Liver transplant
     Dosage: FREQUENCY : EVERY OTHER DAY;?
     Dates: start: 20230823, end: 20240802

REACTIONS (4)
  - Asthenia [None]
  - Confusional state [None]
  - Pneumonia aspiration [None]
  - Disease complication [None]

NARRATIVE: CASE EVENT DATE: 20240805
